FAERS Safety Report 4352249-4 (Version None)
Quarter: 2004Q2

REPORT INFORMATION
  Report Type: 
  Country: None (occurrence: None)
  Receive Date: 20040416
  Receipt Date: 20030701
  Transmission Date: 20050107
  Serious: Yes (Hospitalization)
  Sender: FDA-Public Use
  Company Number: 2003-BP-02210RO (0)

PATIENT
  Age: 59 Year
  Sex: Male
  Weight: 77.1 kg

DRUGS (4)
  1. AZATHIOPRINE [Suspect]
     Indication: CROHN'S DISEASE
     Dosage: 100 MG QD (50 MG, 2 IN 1 D) PO
     Route: 048
     Dates: start: 20030101, end: 20030204
  2. PREDNISONE [Concomitant]
  3. VITAMINS (VITAMINS) [Concomitant]
  4. VITAMIN B12 [Concomitant]

REACTIONS (6)
  - ABDOMINAL PAIN [None]
  - DIARRHOEA [None]
  - NAUSEA [None]
  - PAIN [None]
  - PANCREATITIS [None]
  - PYREXIA [None]
